FAERS Safety Report 20579893 (Version 1)
Quarter: 2022Q1

REPORT INFORMATION
  Report Type: Report from Study
  Country: DE (occurrence: DE)
  Receive Date: 20220310
  Receipt Date: 20220310
  Transmission Date: 20220423
  Serious: Yes (Death, Hospitalization, Other)
  Sender: FDA-Public Use
  Company Number: DE-BRISTOL-MYERS SQUIBB COMPANY-BMS-2021-133163

PATIENT
  Age: 60 Year
  Sex: Male
  Weight: 119 kg

DRUGS (26)
  1. NIVOLUMAB [Suspect]
     Active Substance: NIVOLUMAB
     Indication: Prostate cancer
     Dosage: 366 MILLIGRAM, Q3WK
     Route: 042
     Dates: start: 20211019
  2. IPILIMUMAB [Suspect]
     Active Substance: IPILIMUMAB
     Indication: Prostate cancer
     Dosage: 122 MILLIGRAM, Q3WK
     Route: 042
     Dates: start: 20211019
  3. CABAZITAXEL [Suspect]
     Active Substance: CABAZITAXEL
     Indication: Prostate cancer
     Dosage: 25 MILLIGRAM/SQ. METER
     Route: 065
     Dates: start: 20200916
  4. RAMIPRIL [Concomitant]
     Active Substance: RAMIPRIL
     Indication: Product used for unknown indication
     Dosage: 10 MILLIGRAM
     Route: 065
  5. PREDNISOLONE [Concomitant]
     Active Substance: PREDNISOLONE
     Indication: Product used for unknown indication
     Dosage: 7.5 MILLIGRAM
     Route: 065
     Dates: start: 20211116
  6. PREDNISOLONE [Concomitant]
     Active Substance: PREDNISOLONE
     Dosage: 50 MILLIGRAM
     Route: 065
     Dates: start: 20211126
  7. AMLODIPINE [Concomitant]
     Active Substance: AMLODIPINE BESYLATE
     Indication: Product used for unknown indication
     Dosage: 10 MILLIGRAM
     Route: 065
  8. METOPROLOL [Concomitant]
     Active Substance: METOPROLOL
     Indication: Product used for unknown indication
     Dosage: 95 MILLIGRAM
     Route: 065
  9. TORSEMIDE [Concomitant]
     Active Substance: TORSEMIDE
     Indication: Product used for unknown indication
     Dosage: 10 MILLIGRAM
     Route: 065
  10. SPIRONOLACTONE [Concomitant]
     Active Substance: SPIRONOLACTONE
     Indication: Product used for unknown indication
     Dosage: 50 MILLIGRAM
     Route: 065
  11. NOVALGIN (METAMIZOLE SODIUM) [Concomitant]
     Active Substance: METAMIZOLE SODIUM
     Indication: Product used for unknown indication
     Dosage: 500 MILLIGRAM
     Route: 065
     Dates: start: 20200923
  12. ZOPICLONE [Concomitant]
     Active Substance: ZOPICLONE
     Indication: Product used for unknown indication
     Dosage: 7.5 MILLIGRAM
     Route: 065
     Dates: start: 20201014
  13. ALIZAPRIDE HYDROCHLORIDE [Concomitant]
     Active Substance: ALIZAPRIDE HYDROCHLORIDE
     Indication: Product used for unknown indication
     Dosage: 50 MILLIGRAM
     Route: 065
     Dates: start: 20200916
  14. CERTOPARIN SODIUM [Concomitant]
     Active Substance: CERTOPARIN SODIUM
     Indication: Product used for unknown indication
     Dosage: 3000 IE
     Route: 065
     Dates: start: 20200916
  15. FILGRASTIM [Concomitant]
     Active Substance: FILGRASTIM
     Indication: Product used for unknown indication
     Dosage: 1 DOSAGE FORM=48 MIO IE
     Route: 065
     Dates: start: 20200916
  16. NYSTADERM [Concomitant]
     Indication: Product used for unknown indication
     Dosage: UNK
     Route: 061
     Dates: start: 20200916
  17. MELATONIN [Concomitant]
     Active Substance: MELATONIN
     Indication: Product used for unknown indication
     Dosage: 2 MILLIGRAM
     Route: 065
     Dates: start: 20201209
  18. LOPERAMIDE [Concomitant]
     Active Substance: LOPERAMIDE
     Indication: Product used for unknown indication
     Dosage: UNK
     Route: 065
     Dates: start: 20211125
  19. PIPERACILLIN AND TAZOBACTAM [Concomitant]
     Active Substance: PIPERACILLIN SODIUM\TAZOBACTAM SODIUM
     Indication: Product used for unknown indication
     Dosage: 0.5 GRAM, QID
     Route: 065
  20. HERBALS\PLANTAGO OVATA LEAF [Concomitant]
     Active Substance: HERBALS\PLANTAGO OVATA LEAF
     Indication: Product used for unknown indication
     Dosage: 5 MILLIGRAM, QID
     Route: 065
  21. OMNIFLORA [Concomitant]
     Indication: Product used for unknown indication
     Dosage: 1 MILLIGRAM, TID
     Route: 065
  22. HEPARIN [Concomitant]
     Active Substance: HEPARIN SODIUM
     Indication: Product used for unknown indication
     Dosage: 1 DOSAGE FORM=25000 IE /50ML,ABOUT 24 HOURS
     Route: 065
  23. FRUCTOSE\INSULIN BEEF [Concomitant]
     Active Substance: FRUCTOSE\INSULIN BEEF
     Indication: Product used for unknown indication
     Dosage: 1 DOSAGE FORM= 100 IE/50 ML ABOUT 24 HOURS
     Route: 065
  24. HYDROKORTISON [Concomitant]
     Indication: Product used for unknown indication
     Dosage: 1 DOSAGE FORM=100MG /50 ML ABOUT 24 HOURS
     Route: 065
  25. PANTOPRAZOLE [Concomitant]
     Active Substance: PANTOPRAZOLE
     Indication: Product used for unknown indication
     Dosage: 40 MILLIGRAM,ONCE A DAY
     Route: 065
  26. METOPROLOL SUCCINATE [Concomitant]
     Active Substance: METOPROLOL SUCCINATE
     Indication: Product used for unknown indication
     Dosage: 47.5 MILLIGRAM
     Route: 065

REACTIONS (2)
  - Death [Fatal]
  - Pulmonary embolism [Not Recovered/Not Resolved]

NARRATIVE: CASE EVENT DATE: 20211207
